FAERS Safety Report 8606271-X (Version None)
Quarter: 2012Q3

REPORT INFORMATION
  Report Type: 
  Country: None (occurrence: None)
  Receive Date: 20120820
  Receipt Date: 20120810
  Transmission Date: 20120928
  Serious: Yes (Other)
  Sender: FDA-Public Use
  Company Number: BR-ROCHE-1102114

PATIENT
  Sex: Male
  Weight: 67 kg

DRUGS (3)
  1. ISOTRETINOIN [Suspect]
     Indication: ACNE
     Route: 048
     Dates: start: 20120501, end: 20120601
  2. ISOTRETINOIN [Suspect]
     Route: 048
     Dates: start: 20120701, end: 20120719
  3. KEFLEX [Concomitant]

REACTIONS (3)
  - SEPSIS [None]
  - PLATELET COUNT ABNORMAL [None]
  - ERYTHEMA NODOSUM [None]
